FAERS Safety Report 7308655-9 (Version None)
Quarter: 2011Q1

REPORT INFORMATION
  Report Type: 
  Country: None (occurrence: None)
  Receive Date: 20110211
  Receipt Date: 20110128
  Transmission Date: 20110831
  Serious: Yes (Other)
  Sender: FDA-Public Use
  Company Number: 2011MA000963

PATIENT
  Age: 45 Year
  Sex: Female

DRUGS (4)
  1. DIAZEPAM [Concomitant]
  2. CITALOPRAM HYDROBROMIDE [Concomitant]
  3. PREV MEDS [Concomitant]
  4. FEVERALL [Suspect]
     Dates: start: 20110101

REACTIONS (1)
  - RASH PRURITIC [None]
